FAERS Safety Report 12963027 (Version 1)
Quarter: 2016Q4

REPORT INFORMATION
  Report Type: Spontaneous
  Country: ES (occurrence: ES)
  Receive Date: 20161122
  Receipt Date: 20161122
  Transmission Date: 20170207
  Serious: Yes (Other)
  Sender: FDA-Public Use
  Company Number: ES-TEVA-714334ACC

PATIENT
  Weight: 100 kg

DRUGS (4)
  1. TELMISARTAN. [Concomitant]
     Active Substance: TELMISARTAN
     Indication: HYPERTENSION
     Route: 065
  2. PARACETAMOL [Concomitant]
     Active Substance: ACETAMINOPHEN
     Indication: PRODUCT USED FOR UNKNOWN INDICATION
     Route: 065
  3. BENDAMUSTINE HYDROCHLORIDE. [Suspect]
     Active Substance: BENDAMUSTINE HYDROCHLORIDE
     Indication: MANTLE CELL LYMPHOMA STAGE III
     Dosage: RECEIVED 6 CYCLES
     Route: 042
     Dates: start: 20140306, end: 20140804
  4. RITUXIMAB [Suspect]
     Active Substance: RITUXIMAB
     Indication: MANTLE CELL LYMPHOMA STAGE III
     Dosage: .
     Route: 065
     Dates: start: 20140306, end: 20140804

REACTIONS (2)
  - Therapy partial responder [Unknown]
  - Disease progression [Unknown]

NARRATIVE: CASE EVENT DATE: 2014
